FAERS Safety Report 18525085 (Version 1)
Quarter: 2020Q4

REPORT INFORMATION
  Report Type: Report from Study
  Country: US (occurrence: US)
  Receive Date: 20201119
  Receipt Date: 20201119
  Transmission Date: 20210114
  Serious: No
  Sender: FDA-Public Use
  Company Number: US-JNJFOC-20201133931

PATIENT
  Age: 71 Year
  Sex: Male

DRUGS (2)
  1. PREDNISONE. [Concomitant]
     Active Substance: PREDNISONE
  2. MACITENTAN [Suspect]
     Active Substance: MACITENTAN
     Indication: PULMONARY ARTERIAL HYPERTENSION
     Route: 048
     Dates: start: 20200615

REACTIONS (7)
  - Contusion [Recovered/Resolved]
  - Infective glossitis [Recovered/Resolved]
  - Peripheral swelling [Not Recovered/Not Resolved]
  - Ear infection [Recovered/Resolved]
  - Aphthous ulcer [Recovered/Resolved]
  - Pharyngitis [Recovered/Resolved]
  - Tooth disorder [Recovered/Resolved]

NARRATIVE: CASE EVENT DATE: 20200615
